APPROVED DRUG PRODUCT: ROXYBOND
Active Ingredient: OXYCODONE HYDROCHLORIDE
Strength: 30MG
Dosage Form/Route: TABLET;ORAL
Application: N209777 | Product #003
Applicant: PROTEGA PHARMACEUTICALS INC
Approved: Apr 20, 2017 | RLD: No | RS: No | Type: RX

PATENTS:
Patent 10314788 | Expires: Aug 12, 2028
Patent 7955619 | Expires: Aug 12, 2028